FAERS Safety Report 18602495 (Version 1)
Quarter: 2020Q4

REPORT INFORMATION
  Report Type: Spontaneous
  Country: IT (occurrence: IT)
  Receive Date: 20201211
  Receipt Date: 20201211
  Transmission Date: 20210114
  Serious: Yes (Other)
  Sender: FDA-Public Use
  Company Number: IT-LUPIN PHARMACEUTICALS INC.-2020-03268

PATIENT
  Age: 60 Year
  Sex: Male

DRUGS (2)
  1. LEVETIRACETAM. [Suspect]
     Active Substance: LEVETIRACETAM
     Indication: EPILEPSY
     Dosage: 3000 MILLIGRAM
     Route: 065
  2. LACOSAMIDE. [Suspect]
     Active Substance: LACOSAMIDE
     Indication: EPILEPSY
     Dosage: 400 MILLIGRAM
     Route: 065

REACTIONS (1)
  - Seizure [Unknown]
